FAERS Safety Report 9293013 (Version 1)
Quarter: 2013Q1

REPORT INFORMATION
  Report Type: Spontaneous
  Country: US (occurrence: None)
  Receive Date: 20121212
  Receipt Date: 20121212
  Transmission Date: 20140127
  Serious: No
  Sender: FDA-Public Use
  Company Number: 1210USA010225

PATIENT
  Age: 56 Year
  Sex: Female

DRUGS (3)
  1. VICTRELIS [Suspect]
     Indication: HEPATITIS C
     Dosage: 4 DF (TOTAL 800 MG), TID, ORAL
     Route: 048
     Dates: start: 20121020
  2. PEGASYS [Suspect]
     Indication: HEPATITIS C
     Dates: start: 20120914
  3. RIBASPHERE [Suspect]
     Indication: HEPATITIS C
     Dates: start: 20120914

REACTIONS (1)
  - Abdominal discomfort [None]
